FAERS Safety Report 16556211 (Version 3)
Quarter: 2019Q3

REPORT INFORMATION
  Report Type: Spontaneous
  Country: JP (occurrence: JP)
  Receive Date: 20190710
  Receipt Date: 20190718
  Transmission Date: 20191004
  Serious: Yes (Other)
  Sender: FDA-Public Use
  Company Number: JP-PFIZER INC-2019293542

PATIENT
  Age: 62 Year
  Sex: Male

DRUGS (3)
  1. SUGLAT [Concomitant]
     Active Substance: IPRAGLIFLOZIN L-PROLINE
     Indication: TYPE 1 DIABETES MELLITUS
     Dosage: 50 MG, 1X/DAY
     Route: 048
  2. LIPITOR [Suspect]
     Active Substance: ATORVASTATIN CALCIUM
     Indication: HYPERLIPIDAEMIA
     Dosage: UNK, UNKNOWN FREQ.
     Route: 048
  3. MICARDIS [Suspect]
     Active Substance: TELMISARTAN
     Indication: HYPERLIPIDAEMIA
     Dosage: UNK, UNKNOWN FREQ.
     Route: 048

REACTIONS (4)
  - Glycosylated haemoglobin decreased [Unknown]
  - Diabetes mellitus [Unknown]
  - Weight decreased [Unknown]
  - Therapeutic product effect incomplete [Unknown]
